FAERS Safety Report 11295085 (Version 5)
Quarter: 2015Q3

REPORT INFORMATION
  Report Type: Spontaneous
  Country: HU (occurrence: HU)
  Receive Date: 20150723
  Receipt Date: 20150922
  Transmission Date: 20151125
  Serious: Yes (Death, Hospitalization, Other)
  Sender: FDA-Public Use
  Company Number: HU-PFIZER INC-2015164681

PATIENT
  Age: 66 Year
  Sex: Male

DRUGS (1)
  1. SUTENT [Suspect]
     Active Substance: SUNITINIB MALATE
     Indication: PANCREATIC NEUROENDOCRINE TUMOUR
     Dosage: 37.5 MG, DAILY, CONTINUOUS
     Route: 048
     Dates: start: 20150420, end: 20150625

REACTIONS (13)
  - Dyspnoea [Recovered/Resolved]
  - Anaemia [Recovered/Resolved]
  - Asthenia [Not Recovered/Not Resolved]
  - Pericardial effusion [Not Recovered/Not Resolved]
  - Dyspnoea [Not Recovered/Not Resolved]
  - Anaemia [Not Recovered/Not Resolved]
  - Skin plaque [Not Recovered/Not Resolved]
  - Blood creatinine increased [Not Recovered/Not Resolved]
  - Thrombocytopenia [Recovered/Resolved]
  - Hiccups [Recovered/Resolved]
  - Disease progression [Fatal]
  - Pancreatic neuroendocrine tumour [Fatal]
  - Stomatitis [Recovered/Resolved]

NARRATIVE: CASE EVENT DATE: 20150510
